FAERS Safety Report 9277376 (Version 1)
Quarter: 2013Q2

REPORT INFORMATION
  Report Type: Spontaneous
  Country: US (occurrence: None)
  Receive Date: 20130503
  Receipt Date: 20130503
  Transmission Date: 20140414
  Serious: Yes (Other)
  Sender: FDA-Public Use
  Company Number: None

PATIENT
  Age: 70 Year
  Sex: Female

DRUGS (2)
  1. RECLAST [Suspect]
     Indication: OSTEOPOROSIS
     Dosage: 5 MG YEARLY IV
     Route: 042
     Dates: start: 20120620
  2. RECLAST [Suspect]
     Indication: OSTEOPENIA
     Dosage: 5 MG YEARLY IV
     Route: 042
     Dates: start: 20120620

REACTIONS (1)
  - Osteonecrosis of jaw [None]
